FAERS Safety Report 8073332-6 (Version None)
Quarter: 2012Q1

REPORT INFORMATION
  Report Type: 
  Country: None (occurrence: None)
  Receive Date: 20120120
  Receipt Date: 20120111
  Transmission Date: 20120608
  Serious: Yes (Death, Hospitalization, Other)
  Sender: FDA-Public Use
  Company Number: TPA2012A00252

PATIENT
  Age: 53 Year
  Sex: Female

DRUGS (7)
  1. LASIX [Concomitant]
  2. DITROPAN (OXYBUTYN) [Concomitant]
  3. METFORMIN HCL [Concomitant]
  4. ACTOS [Suspect]
     Indication: TYPE 2 DIABETES MELLITUS
     Dosage: 30 MG, PER ORAL
     Route: 048
     Dates: start: 20100728, end: 20110217
  5. GLIMEPIRIDE [Concomitant]
  6. BYETTA (BYETTA) [Concomitant]
  7. LANTUS [Concomitant]

REACTIONS (3)
  - BLADDER CANCER [None]
  - METASTASES TO LUNG [None]
  - DRUG INEFFECTIVE [None]
